FAERS Safety Report 8101317-X (Version None)
Quarter: 2012Q1

REPORT INFORMATION
  Report Type: 
  Country: None (occurrence: None)
  Receive Date: 20120131
  Receipt Date: 20120123
  Transmission Date: 20120608
  Serious: Yes (Disabling, Other)
  Sender: FDA-Public Use
  Company Number: US-ASTRAZENECA-2011SE46449

PATIENT
  Age: 83 Year
  Sex: Female

DRUGS (2)
  1. TOPROL-XL [Suspect]
     Route: 048
  2. NEXIUM [Suspect]
     Route: 048

REACTIONS (12)
  - DEAFNESS [None]
  - ARTHRITIS [None]
  - DRUG DOSE OMISSION [None]
  - DYSARTHRIA [None]
  - DIABETES MELLITUS [None]
  - PAIN [None]
  - SPINAL COLUMN INJURY [None]
  - DYSPEPSIA [None]
  - MALAISE [None]
  - BLINDNESS UNILATERAL [None]
  - FALL [None]
  - BONE PAIN [None]
